FAERS Safety Report 4515187-X (Version None)
Quarter: 2004Q4

REPORT INFORMATION
  Report Type: 
  Country: None (occurrence: None)
  Receive Date: 20041201
  Receipt Date: 20041124
  Transmission Date: 20050328
  Serious: Yes (Hospitalization)
  Sender: FDA-Public Use
  Company Number: VIN-04-0442(0)

PATIENT
  Age: 65 Year
  Sex: Male

DRUGS (5)
  1. VINORELBINE [Suspect]
     Indication: NON-SMALL CELL LUNG CANCER STAGE III
     Dosage: 30MGM2 CYCLIC
     Route: 042
     Dates: start: 20031231
  2. LANOXIN [Suspect]
     Indication: CARDIAC FAILURE CONGESTIVE
     Route: 048
  3. FUROSEMIDE [Suspect]
     Indication: CARDIAC FAILURE CONGESTIVE
     Dosage: 40MG PER DAY
     Route: 048
     Dates: end: 20040506
  4. METOPROLOL [Concomitant]
  5. PRAZOSIN HCL [Concomitant]
     Indication: HYPERTENSION
     Dosage: 1MG TWICE PER DAY
     Route: 048

REACTIONS (5)
  - ELECTROCARDIOGRAM CHANGE [None]
  - ORTHOSTATIC HYPOTENSION [None]
  - RIB FRACTURE [None]
  - SYNCOPE [None]
  - VENTRICULAR DYSFUNCTION [None]
